FAERS Safety Report 10706042 (Version 1)
Quarter: 2015Q1

REPORT INFORMATION
  Report Type: Spontaneous
  Country: ES (occurrence: ES)
  Receive Date: 20150113
  Receipt Date: 20150113
  Transmission Date: 20150721
  Serious: Yes (Death)
  Sender: FDA-Public Use
  Company Number: ES-CIPLA LTD.-2014ES03070

PATIENT

DRUGS (2)
  1. EMTRICITABINE [Suspect]
     Active Substance: EMTRICITABINE
  2. TENOFOVIR DISOPROXIL FUMARATE [Suspect]
     Active Substance: TENOFOVIR DISOPROXIL FUMARATE
     Indication: CHRONIC HEPATITIS B
     Dosage: 300 MG, QD

REACTIONS (1)
  - Hepatic neoplasm [Fatal]
